FAERS Safety Report 11364170 (Version 1)
Quarter: 2015Q3

REPORT INFORMATION
  Report Type: Spontaneous
  Country: US (occurrence: US)
  Receive Date: 20150811
  Receipt Date: 20150811
  Transmission Date: 20151125
  Serious: Yes (Other)
  Sender: FDA-Public Use
  Company Number: US-JNJCP-30000297490

PATIENT
  Sex: Male
  Weight: 93 kg

DRUGS (1)
  1. NEUTROGENA BEACH DEFENSE WATER PLUS SUN BARRIER SUNSCREEN BROAD SPECTRUM SPF30 [Suspect]
     Active Substance: AVOBENZONE\HOMOSALATE\OCTISALATE\OCTOCRYLENE\OXYBENZONE
     Indication: PROPHYLAXIS
     Dosage: A LITTLE OVER QUARTER TO 50 CENT PIECE RE-APPLIED
     Route: 061
     Dates: start: 20150725, end: 20150725

REACTIONS (4)
  - Tonsillitis [Recovering/Resolving]
  - Application site exfoliation [Recovering/Resolving]
  - Sunburn [Recovering/Resolving]
  - Application site vesicles [Recovering/Resolving]

NARRATIVE: CASE EVENT DATE: 201507
